FAERS Safety Report 4330585-5 (Version None)
Quarter: 2004Q1

REPORT INFORMATION
  Report Type: 
  Country: None (occurrence: None)
  Receive Date: 20040329
  Receipt Date: 20040310
  Transmission Date: 20041129
  Serious: No
  Sender: FDA-Public Use
  Company Number: A04200300787

PATIENT
  Age: 70 Year
  Sex: Male

DRUGS (8)
  1. UROXATRAL [Suspect]
     Indication: BENIGN PROSTATIC HYPERPLASIA
     Dosage: 10 MG OD ORAL
     Route: 048
     Dates: start: 20031014, end: 20031016
  2. ISCOVER (CLOPIDOGREL SULFATE) [Concomitant]
  3. ZOCOR [Concomitant]
  4. SIMVABETA (SIMVASTATIN) [Concomitant]
  5. CARVEDILOL [Concomitant]
  6. DELMUNO (FELODIPINE + RAMIPRIL) [Concomitant]
  7. TOREM (TORASEMIDE) [Concomitant]
  8. INSULIN [Concomitant]

REACTIONS (3)
  - ANGINA PECTORIS [None]
  - DIZZINESS [None]
  - FEELING ABNORMAL [None]
